FAERS Safety Report 21410835 (Version 1)
Quarter: 2022Q4

REPORT INFORMATION
  Report Type: Spontaneous
  Country: US (occurrence: None)
  Receive Date: 20221004
  Receipt Date: 20221004
  Transmission Date: 20230113
  Serious: No
  Sender: FDA-Public Use
  Company Number: None

PATIENT
  Age: 37 Year
  Sex: Female

DRUGS (1)
  1. TREMFYA [Suspect]
     Active Substance: GUSELKUMAB
     Indication: Psoriasis
     Dosage: FREQUENCY : AS DIRECTED;?INJECT 100MG SUBCUTANEOUSLY AT WEEK O AND WEEK 4 AS?DIRECTED.?
     Route: 058
     Dates: start: 202108

REACTIONS (2)
  - COVID-19 [None]
  - Therapy interrupted [None]
